FAERS Safety Report 9341247 (Version 3)
Quarter: 2014Q1

REPORT INFORMATION
  Report Type: Report from Study
  Country: BR (occurrence: BR)
  Receive Date: 20130611
  Receipt Date: 20140121
  Transmission Date: 20141002
  Serious: Yes (Hospitalization, Other)
  Sender: FDA-Public Use
  Company Number: BR-ASTRAZENECA-2013SE06645

PATIENT
  Age: 29534 Day
  Sex: Male

DRUGS (12)
  1. ASA [Suspect]
     Route: 048
     Dates: end: 20130120
  2. ASA [Suspect]
     Route: 048
     Dates: start: 20130209
  3. AZD6140 [Suspect]
     Indication: CORONARY ARTERY DISEASE
     Route: 048
     Dates: start: 20110920, end: 20130122
  4. AZD6140 [Suspect]
     Indication: CORONARY ARTERY DISEASE
     Route: 048
     Dates: start: 20130209
  5. LEVOTHYROXINE [Concomitant]
     Indication: HYPOTHYROIDISM
     Route: 048
  6. SIMVASTATIN [Concomitant]
     Indication: DYSLIPIDAEMIA
     Route: 048
  7. FINASTERIDE [Concomitant]
     Indication: BENIGN PROSTATIC HYPERPLASIA
     Route: 048
  8. PARACETAMOL [Concomitant]
     Indication: PAIN
     Dosage: AS REQUIRED
     Route: 048
  9. ENALAPRIL [Concomitant]
     Indication: HYPERTENSION
     Route: 048
     Dates: start: 20110920, end: 20130215
  10. ATENOLOL [Concomitant]
     Indication: HYPERTENSION
     Route: 048
     Dates: start: 20110920, end: 20130215
  11. GLUCOSAMINE SULFATE [Concomitant]
     Indication: SPINAL OSTEOARTHRITIS
     Route: 048
     Dates: start: 20120117, end: 20130215
  12. AMITRIPTYLINE [Concomitant]
     Indication: SPINAL OSTEOARTHRITIS
     Route: 048
     Dates: start: 20130117, end: 20130217

REACTIONS (1)
  - Diverticulum intestinal haemorrhagic [Recovered/Resolved]
